FAERS Safety Report 7001459-6 (Version None)
Quarter: 2010Q3

REPORT INFORMATION
  Report Type: 
  Country: None (occurrence: None)
  Receive Date: 20100920
  Receipt Date: 20100119
  Transmission Date: 20110219
  Serious: No
  Sender: FDA-Public Use
  Company Number: US-ASTRAZENECA-2010SE03161

PATIENT
  Sex: Female

DRUGS (5)
  1. SEROQUEL XR [Suspect]
     Route: 048
  2. ENDERAL [Concomitant]
  3. RELPAX [Concomitant]
  4. NORCO [Concomitant]
  5. NEURONTIN [Concomitant]

REACTIONS (4)
  - DIARRHOEA [None]
  - DRUG DOSE OMISSION [None]
  - MIGRAINE [None]
  - MUSCLE SPASMS [None]
